FAERS Safety Report 9973671 (Version 1)
Quarter: 2014Q1

REPORT INFORMATION
  Report Type: Spontaneous
  Country: US (occurrence: None)
  Receive Date: 20140214
  Receipt Date: 20140214
  Transmission Date: 20141002
  Serious: Yes (Other)
  Sender: FDA-Public Use
  Company Number: US-013405

PATIENT
  Age: 51 Year
  Sex: Female
  Weight: 58.97 kg

DRUGS (2)
  1. PICO-SALAX (NOT SPECIFIED) [Suspect]
     Indication: BOWEL PREPARATION
     Dosage: (1ST DOSE IN AFTERNOON ON 4OCT2013); 2ND DOSE IN THE MORNING OF 5OCT2013)
     Dates: start: 20131004, end: 20131005
  2. DEXILANT [Concomitant]

REACTIONS (1)
  - Condition aggravated [None]
